FAERS Safety Report 24380782 (Version 1)
Quarter: 2024Q3

REPORT INFORMATION
  Report Type: Spontaneous
  Country: US (occurrence: US)
  Receive Date: 20240930
  Receipt Date: 20240930
  Transmission Date: 20241017
  Serious: Yes (Other)
  Sender: BRISTOL MYERS SQUIBB
  Company Number: US-BRISTOL-MYERS SQUIBB COMPANY-2024-151216

PATIENT
  Age: 8 Decade
  Sex: Female

DRUGS (1)
  1. CAMZYOS [Suspect]
     Active Substance: MAVACAMTEN
     Indication: Hypertrophic cardiomyopathy
     Route: 048
     Dates: end: 2024

REACTIONS (5)
  - Pruritus [Unknown]
  - Lip exfoliation [Unknown]
  - Renal pain [Unknown]
  - Swelling [Unknown]
  - Liver injury [Unknown]
